FAERS Safety Report 10422351 (Version 1)
Quarter: 2014Q3

REPORT INFORMATION
  Report Type: Spontaneous
  Country: AT (occurrence: AT)
  Receive Date: 20140901
  Receipt Date: 20140901
  Transmission Date: 20150326
  Serious: Yes (Other)
  Sender: FDA-Public Use
  Company Number: PHHY2014AT106520

PATIENT
  Age: 56 Year
  Sex: Female
  Weight: 49 kg

DRUGS (3)
  1. METHOTREXATE (METHOTREXATE SODIUM) [Suspect]
     Active Substance: METHOTREXATE SODIUM
     Indication: RHEUMATOID ARTHRITIS
     Dates: start: 20140607, end: 201407
  2. METOPROLOL SUCCINATE. [Concomitant]
     Active Substance: METOPROLOL SUCCINATE
     Indication: HYPERTENSION
     Route: 048
  3. SINTROM [Concomitant]
     Active Substance: ACENOCOUMAROL
     Indication: PULMONARY EMBOLISM

REACTIONS (3)
  - Nausea [Recovered/Resolved]
  - International normalised ratio increased [Recovered/Resolved]
  - Retinal haemorrhage [Recovered/Resolved]

NARRATIVE: CASE EVENT DATE: 201407
